FAERS Safety Report 5165142-4 (Version None)
Quarter: 2006Q4

REPORT INFORMATION
  Report Type: 
  Country: None (occurrence: None)
  Receive Date: 20061127
  Receipt Date: 20061113
  Transmission Date: 20070319
  Serious: Yes (Death, Hospitalization)
  Sender: FDA-Public Use
  Company Number: GXKR2006US07302

PATIENT
  Age: 49 Year
  Sex: Female

DRUGS (2)
  1. SUMATRIPTAN (NGX) (SUMATRIPTAN) UNKNOWN [Suspect]
  2. BUPROPION HCL [Concomitant]

REACTIONS (14)
  - BRADYCARDIA [None]
  - COMA [None]
  - HYPERTENSION [None]
  - LETHARGY [None]
  - MIOSIS [None]
  - MULTIPLE DRUG OVERDOSE INTENTIONAL [None]
  - PUPILS UNEQUAL [None]
  - PYREXIA [None]
  - SUICIDE ATTEMPT [None]
  - TACHYCARDIA [None]
  - TACHYPNOEA [None]
  - THALAMIC INFARCTION [None]
  - THERAPY NON-RESPONDER [None]
  - VOMITING [None]
